FAERS Safety Report 5597172-2 (Version None)
Quarter: 2008Q1

REPORT INFORMATION
  Report Type: 
  Country: None (occurrence: None)
  Receive Date: 20080121
  Receipt Date: 20080116
  Transmission Date: 20080703
  Serious: Yes (Death, Hospitalization, Other)
  Sender: FDA-Public Use
  Company Number: US-JNJFOC-20080101532

PATIENT
  Sex: Female

DRUGS (5)
  1. DOXIL [Suspect]
     Indication: MULTIPLE MYELOMA
     Route: 065
  2. VELCADE [Suspect]
     Indication: MULTIPLE MYELOMA
     Route: 065
  3. TANESPIMYCIN [Suspect]
     Indication: MULTIPLE MYELOMA
     Route: 065
  4. DECADRON [Concomitant]
     Route: 065
  5. THALIDOMIDE [Concomitant]
     Route: 065

REACTIONS (6)
  - ATRIAL FLUTTER [None]
  - CARDIAC AMYLOIDOSIS [None]
  - CARDIAC FAILURE CONGESTIVE [None]
  - CARDIAC TAMPONADE [None]
  - MULTIPLE MYELOMA [None]
  - RENAL FAILURE ACUTE [None]
